FAERS Safety Report 14452946 (Version 8)
Quarter: 2022Q1

REPORT INFORMATION
  Report Type: Spontaneous
  Country: US (occurrence: US)
  Receive Date: 20180129
  Receipt Date: 20220329
  Transmission Date: 20220423
  Serious: Yes (Life-Threatening, Hospitalization, Other)
  Sender: FDA-Public Use
  Company Number: US-PFIZER INC-2016552476

PATIENT
  Age: 66 Year
  Sex: Female
  Weight: 89 kg

DRUGS (23)
  1. LYRICA [Suspect]
     Active Substance: PREGABALIN
     Indication: Diabetic neuropathy
     Dosage: 300 MG, 2X/DAY
     Route: 048
     Dates: start: 20161122
  2. LYRICA [Suspect]
     Active Substance: PREGABALIN
     Indication: Neuropathy peripheral
     Dosage: 300 MG, 2X/DAY
     Route: 048
     Dates: start: 20150902, end: 20180119
  3. LYRICA [Suspect]
     Active Substance: PREGABALIN
     Dosage: 300 MG, 2X/DAY (I TAKE ONE IN THE MORNING AND ONE AT NIGHT)
     Route: 048
     Dates: start: 2018
  4. PRILOSEC [Concomitant]
     Active Substance: OMEPRAZOLE MAGNESIUM
     Dosage: 40 MG, UNK
  5. AMARYL [Concomitant]
     Active Substance: GLIMEPIRIDE
     Dosage: 1 MG, UNK
  6. PRAVACHOL [Concomitant]
     Active Substance: PRAVASTATIN SODIUM
     Dosage: 40 MG, UNK
  7. GLUCOPHAGE [Concomitant]
     Active Substance: METFORMIN HYDROCHLORIDE
     Dosage: 1000 MG, UNK
  8. ELAVIL [Concomitant]
     Active Substance: AMITRIPTYLINE HYDROCHLORIDE
     Dosage: 100 MG, UNK
  9. ASPIRIN [Concomitant]
     Active Substance: ASPIRIN
     Dosage: UNK
     Route: 048
  10. PROVENTIL HFA [Concomitant]
     Active Substance: ALBUTEROL SULFATE
     Dosage: UNK (90MCG/ACTURATION)
     Route: 055
  11. VENTOLIN HFA [Concomitant]
     Active Substance: ALBUTEROL SULFATE
     Dosage: UNK (90MCG/ACTURATION INHALER)
     Route: 055
  12. PROAIR HFA [Concomitant]
     Active Substance: ALBUTEROL SULFATE
     Dosage: UNK (90MCG/ACTURATION INHALER)
     Route: 055
  13. KEFLEX [Concomitant]
     Active Substance: CEPHALEXIN
     Dosage: 250 MG, UNK
  14. CRANBERRY PLUS VITAMIN C [Concomitant]
     Dosage: UNK
     Route: 048
  15. VITAMIN B COMPLEX NOS [Concomitant]
     Active Substance: CYANOCOBALAMIN\PYRIDOXINE HYDROCHLORIDE\RIBOFLAVIN\SODIUM PANTOTHENATE\THIAMINE HYDROCHLORIDE\VITAMI
     Dosage: UNK
  16. VITAMIN D3 [Concomitant]
     Active Substance: CHOLECALCIFEROL
     Dosage: 2000 IU, UNK
  17. CELEBREX [Concomitant]
     Active Substance: CELECOXIB
     Dosage: 200 MG, UNK
  18. LOVASTATIN [Concomitant]
     Active Substance: LOVASTATIN
     Dosage: 20 MG, 1X/DAY; QD
  19. RANITIDINE [Concomitant]
     Active Substance: RANITIDINE
     Dosage: 300 MG, 1X/DAY; QD
  20. METFORMIN [Concomitant]
     Active Substance: METFORMIN HYDROCHLORIDE
     Dosage: 1000 MG, 2X/DAY
  21. GLIMEPIRIDE [Concomitant]
     Active Substance: GLIMEPIRIDE
     Dosage: 1 MG, 1X/DAY (QAM)
  22. ASPIRIN [Concomitant]
     Active Substance: ASPIRIN
     Dosage: 81 MG, 1X/DAY
  23. TRAZODONE [Concomitant]
     Active Substance: TRAZODONE HYDROCHLORIDE
     Dosage: 100 MG, 1X/DAY (QHS)

REACTIONS (21)
  - Dysphagia [Unknown]
  - Acute kidney injury [Unknown]
  - Cervical spinal stenosis [Unknown]
  - Fall [Unknown]
  - Dehydration [Unknown]
  - Limb discomfort [Unknown]
  - Blindness unilateral [Not Recovered/Not Resolved]
  - Condition aggravated [Not Recovered/Not Resolved]
  - Eye haemorrhage [Unknown]
  - Drug ineffective [Unknown]
  - Skin ulcer [Unknown]
  - Blood creatinine increased [Unknown]
  - Anaemia [Unknown]
  - Renal disorder [Unknown]
  - Influenza [Unknown]
  - Weight decreased [Unknown]
  - Dyschromatopsia [Unknown]
  - Body height decreased [Unknown]
  - Visual impairment [Unknown]
  - Pain in extremity [Unknown]
  - Ocular discomfort [Unknown]

NARRATIVE: CASE EVENT DATE: 20171226
